FAERS Safety Report 9432541 (Version 3)
Quarter: 2013Q3

REPORT INFORMATION
  Report Type: Report from Study
  Country: CA (occurrence: CA)
  Receive Date: 20130731
  Receipt Date: 20130829
  Transmission Date: 20140515
  Serious: Yes (Death, Other)
  Sender: FDA-Public Use
  Company Number: PHHY2013CA080483

PATIENT
  Age: 59 Year
  Sex: Male

DRUGS (2)
  1. SANDOSTATIN LAR [Suspect]
     Indication: PANCREATIC CARCINOMA
     Dosage: 30 MG, EVERY 4 WEEKS
     Route: 030
     Dates: start: 20121115, end: 20130725
  2. MORPHINE [Concomitant]
     Dosage: UNK UKN, UNK

REACTIONS (7)
  - Malignant neoplasm progression [Fatal]
  - Respiratory rate increased [Unknown]
  - Upper respiratory tract congestion [Unknown]
  - Skin discolouration [Unknown]
  - Cachexia [Unknown]
  - Ascites [Unknown]
  - Abdominal distension [Unknown]
